FAERS Safety Report 6111726-6 (Version None)
Quarter: 2009Q1

REPORT INFORMATION
  Report Type: 
  Country: None (occurrence: None)
  Receive Date: 20090310
  Receipt Date: 20090310
  Transmission Date: 20090719
  Serious: Yes (Other)
  Sender: FDA-Public Use
  Company Number: None

PATIENT
  Age: 25 Year
  Sex: Female
  Weight: 46.7205 kg

DRUGS (2)
  1. SERTRALINE [Suspect]
     Indication: ANXIETY
     Dosage: 50MG  ONE DAILY PO; 25 MG ONE DAILY PO
     Route: 048
     Dates: start: 20081219, end: 20090105
  2. SERTRALINE [Suspect]
     Indication: DEPRESSION
     Dosage: 50MG  ONE DAILY PO; 25 MG ONE DAILY PO
     Route: 048
     Dates: start: 20081219, end: 20090105

REACTIONS (21)
  - ANXIETY [None]
  - BACK PAIN [None]
  - CHILLS [None]
  - DISTURBANCE IN SEXUAL AROUSAL [None]
  - ENERGY INCREASED [None]
  - EUPHORIC MOOD [None]
  - FEELING ABNORMAL [None]
  - FEELING COLD [None]
  - IMPULSIVE BEHAVIOUR [None]
  - INFLUENZA LIKE ILLNESS [None]
  - MENTAL DISORDER [None]
  - MOVEMENT DISORDER [None]
  - MUSCLE RIGIDITY [None]
  - MUSCULOSKELETAL DISCOMFORT [None]
  - NEURALGIA [None]
  - NO THERAPEUTIC RESPONSE [None]
  - OEDEMA PERIPHERAL [None]
  - PARAESTHESIA [None]
  - PARANOIA [None]
  - TREMOR [None]
  - WITHDRAWAL SYNDROME [None]
